FAERS Safety Report 14331231 (Version 1)
Quarter: 2017Q4

REPORT INFORMATION
  Report Type: Spontaneous
  Country: IT (occurrence: IT)
  Receive Date: 20171228
  Receipt Date: 20171228
  Transmission Date: 20180321
  Serious: Yes (Other)
  Sender: FDA-Public Use
  Company Number: IT-CIPLA LTD.-2017IT27097

PATIENT

DRUGS (2)
  1. CARBOPLATIN. [Suspect]
     Active Substance: CARBOPLATIN
     Indication: NON-SMALL CELL LUNG CANCER
     Dosage: 1 DF, THRICE WEKLY, 1 DF=AUC 4
     Route: 065
  2. PEMETREXED. [Suspect]
     Active Substance: PEMETREXED
     Indication: NON-SMALL CELL LUNG CANCER
     Dosage: 375 MG/M2, THRICE WEEKLY
     Route: 065

REACTIONS (4)
  - Anaemia [Unknown]
  - Malignant neoplasm progression [Unknown]
  - Off label use [Unknown]
  - Thrombocytopenia [Unknown]
